FAERS Safety Report 25768393 (Version 1)
Quarter: 2025Q3

REPORT INFORMATION
  Report Type: Spontaneous
  Country: US (occurrence: US)
  Receive Date: 20250905
  Receipt Date: 20250905
  Transmission Date: 20251020
  Serious: No
  Sender: AZURITY PHARMACEUTICALS
  Company Number: US-AZURITY PHARMACEUTICALS, INC.-AZR202501-000015

PATIENT
  Sex: Male

DRUGS (1)
  1. EVEKEO [Suspect]
     Active Substance: AMPHETAMINE SULFATE
     Indication: Product used for unknown indication
     Route: 065

REACTIONS (2)
  - Disturbance in attention [Unknown]
  - Irritability [Unknown]
